FAERS Safety Report 18543606 (Version 2)
Quarter: 2020Q4

REPORT INFORMATION
  Report Type: Spontaneous
  Country: US (occurrence: US)
  Receive Date: 20201125
  Receipt Date: 20201202
  Transmission Date: 20210114
  Serious: No
  Sender: FDA-Public Use
  Company Number: US-TEVA-2020-US-1852727

PATIENT
  Age: 72 Year
  Sex: Male

DRUGS (4)
  1. DIAZEPAM MYLAN [Suspect]
     Active Substance: DIAZEPAM
     Indication: CHEST PAIN
     Route: 065
  2. DIAZEPAM MYLAN [Suspect]
     Active Substance: DIAZEPAM
     Indication: ANXIETY
     Route: 065
  3. DIAZEPAM MYLAN [Suspect]
     Active Substance: DIAZEPAM
     Indication: DISTURBANCE IN ATTENTION
  4. DIAZEPAM MYLAN [Suspect]
     Active Substance: DIAZEPAM
     Indication: MUSCLE TIGHTNESS
     Route: 065

REACTIONS (1)
  - Drug ineffective [Unknown]
